FAERS Safety Report 22304684 (Version 1)
Quarter: 2023Q2

REPORT INFORMATION
  Report Type: Spontaneous
  Country: US (occurrence: None)
  Receive Date: 20230509
  Receipt Date: 20230509
  Transmission Date: 20230722
  Serious: Yes (Death)
  Sender: FDA-Public Use
  Company Number: None

PATIENT
  Sex: Male

DRUGS (2)
  1. MVASI [Suspect]
     Active Substance: BEVACIZUMAB-AWWB
     Indication: Hepatocellular carcinoma
     Route: 042
     Dates: start: 202303, end: 202304
  2. MVASI [Concomitant]
     Active Substance: BEVACIZUMAB-AWWB
     Dates: start: 20230321, end: 20230410

REACTIONS (1)
  - Death [None]
